FAERS Safety Report 8639558 (Version 3)
Quarter: 2012Q4

REPORT INFORMATION
  Report Type: 
  Country: PL (occurrence: PL)
  Receive Date: 20120627
  Receipt Date: 20120906
  Transmission Date: 20130627
  Serious: Yes (Death, Other)
  Sender: FDA-Public Use
  Company Number: PL-ROCHE-1079680

PATIENT
  Age: 62 Year
  Sex: Male
  Weight: 77 kg

DRUGS (9)
  1. CAPECITABINE [Suspect]
     Indication: METASTATIC GASTRIC CANCER
     Route: 065
     Dates: start: 200911, end: 201003
  2. CAPECITABINE [Suspect]
     Route: 065
     Dates: start: 20101027, end: 20110406
  3. CAPECITABINE [Suspect]
     Route: 065
     Dates: start: 201111
  4. EPIRUBICIN [Suspect]
     Indication: METASTATIC GASTRIC CANCER
     Route: 065
     Dates: start: 200911, end: 201003
  5. EPIRUBICIN [Suspect]
     Route: 042
     Dates: start: 20101027, end: 20110406
  6. EPIRUBICIN [Suspect]
     Route: 065
     Dates: start: 201111
  7. OXALIPLATIN [Suspect]
     Indication: METASTATIC GASTRIC CANCER
     Route: 065
     Dates: start: 200911, end: 201003
  8. OXALIPLATIN [Suspect]
     Route: 042
     Dates: start: 20101027, end: 20110406
  9. OXALIPLATIN [Suspect]
     Route: 065
     Dates: start: 201111

REACTIONS (7)
  - Disease progression [Fatal]
  - Neutropenia [Recovered/Resolved]
  - Pleural effusion [Unknown]
  - Polyneuropathy [Not Recovered/Not Resolved]
  - Palmar-plantar erythrodysaesthesia syndrome [Unknown]
  - General physical health deterioration [Unknown]
  - Dyspnoea [Unknown]
